FAERS Safety Report 7254978-1 (Version None)
Quarter: 2011Q1

REPORT INFORMATION
  Report Type: 
  Country: None (occurrence: None)
  Receive Date: 20110129
  Receipt Date: 20100205
  Transmission Date: 20110831
  Serious: No
  Sender: FDA-Public Use
  Company Number: US-ABBOTT-10P-163-0624910-00

PATIENT
  Sex: Female
  Weight: 61.29 kg

DRUGS (4)
  1. HUMIRA [Suspect]
     Route: 058
     Dates: start: 20080101, end: 20090501
  2. HUMIRA [Suspect]
     Indication: RHEUMATOID ARTHRITIS
     Route: 058
     Dates: start: 20050101, end: 20080101
  3. PREDNISONE [Suspect]
     Indication: RHEUMATOID ARTHRITIS
     Route: 048
  4. METHOTREXATE [Concomitant]
     Indication: RHEUMATOID ARTHRITIS
     Route: 048

REACTIONS (5)
  - INCREASED TENDENCY TO BRUISE [None]
  - WEIGHT BEARING DIFFICULTY [None]
  - CORNEAL THINNING [None]
  - RHEUMATOID ARTHRITIS [None]
  - PAIN [None]
